FAERS Safety Report 11355230 (Version 8)
Quarter: 2019Q1

REPORT INFORMATION
  Report Type: Report from Study
  Country: CH (occurrence: CH)
  Receive Date: 20150807
  Receipt Date: 20190210
  Transmission Date: 20190417
  Serious: Yes (Other)
  Sender: FDA-Public Use
  Company Number: PHHY2015CH027227

PATIENT
  Sex: Male

DRUGS (1)
  1. GILENYA [Suspect]
     Active Substance: FINGOLIMOD HYDROCHLORIDE
     Indication: MULTIPLE SCLEROSIS
     Dosage: UNK, QD
     Route: 048
     Dates: start: 20131007

REACTIONS (6)
  - Fatigue [Unknown]
  - Liver disorder [Unknown]
  - Transaminases increased [Unknown]
  - Ear infection [Unknown]
  - Depression [Unknown]
  - Hypertension [Unknown]
